FAERS Safety Report 7771185-4 (Version None)
Quarter: 2011Q3

REPORT INFORMATION
  Report Type: 
  Country: None (occurrence: None)
  Receive Date: 20110922
  Receipt Date: 20100901
  Transmission Date: 20111222
  Serious: No
  Sender: FDA-Public Use
  Company Number: US-ASTRAZENECA-2010SE41267

PATIENT
  Age: 41 Year
  Sex: Male

DRUGS (4)
  1. SEROQUEL [Suspect]
     Indication: DEPRESSION
     Route: 048
     Dates: start: 20090101
  2. SEROQUEL [Suspect]
     Indication: ANXIETY
     Route: 048
     Dates: start: 20090101
  3. NEXIUM [Concomitant]
     Indication: GASTROOESOPHAGEAL REFLUX DISEASE
  4. AVOLYTE [Concomitant]
     Indication: BLOOD PRESSURE ABNORMAL

REACTIONS (6)
  - AGITATION [None]
  - MENTAL IMPAIRMENT [None]
  - ANXIETY [None]
  - IRRITABILITY [None]
  - ANGER [None]
  - VIOLENCE-RELATED SYMPTOM [None]
